FAERS Safety Report 7822892-6 (Version None)
Quarter: 2011Q4

REPORT INFORMATION
  Report Type: 
  Country: None (occurrence: None)
  Receive Date: 20111018
  Receipt Date: 20101108
  Transmission Date: 20120403
  Serious: No
  Sender: FDA-Public Use
  Company Number: US-ASTRAZENECA-2010SE53270

PATIENT
  Sex: Female

DRUGS (3)
  1. SYMBICORT [Suspect]
     Indication: CHRONIC OBSTRUCTIVE PULMONARY DISEASE
     Dosage: 160/4.5 MCG, FREQUENCY: UNKNOWN.
     Route: 055
  2. SYMBICORT [Suspect]
     Dosage: 80/4.5 MCG, FREQUENCY: UNKNOWN.
     Route: 055
  3. SYMBICORT [Suspect]
     Dosage: 160/4.5 MCG, DAILY.
     Route: 055

REACTIONS (6)
  - SPEECH DISORDER [None]
  - DYSPHONIA [None]
  - OROPHARYNGEAL PAIN [None]
  - NERVOUSNESS [None]
  - BLOOD PRESSURE INCREASED [None]
  - DRUG DISPENSING ERROR [None]
